FAERS Safety Report 5006543-4 (Version None)
Quarter: 2006Q2

REPORT INFORMATION
  Report Type: 
  Country: None (occurrence: None)
  Receive Date: 20060516
  Receipt Date: 20060502
  Transmission Date: 20061013
  Serious: Yes (Hospitalization)
  Sender: FDA-Public Use
  Company Number: AZAAU200600037

PATIENT
  Age: 72 Year
  Sex: Male

DRUGS (14)
  1. AZACITIDINE (AZACITIDINE) (INJECTION) [Suspect]
     Indication: MYELODYSPLASTIC SYNDROME
     Dosage: 75 MG/M2 (DAILY X 7 DAYS), SUBCUTANEOUS
     Route: 058
     Dates: start: 20060113, end: 20060119
  2. LOPERAMIDE HCL [Concomitant]
  3. VALACYCLOVIR [Concomitant]
  4. PROBAC (SACCHAROMYCES BOULARDII) [Concomitant]
  5. BIOMAGNESIUM (MAGNESIUM) [Concomitant]
  6. ACETAMINOPHEN [Concomitant]
  7. TELMISARTAN (TELMISARTAN) [Concomitant]
  8. RIFAMPICIN [Concomitant]
  9. FLUCONAZOLE [Concomitant]
  10. AUGMENTIN FORTE (AMOXICILLIN W/CLAVULANATE POTASSIUM) [Concomitant]
  11. METOCLOPRAMIDE [Concomitant]
  12. MIRTAZAPINE [Concomitant]
  13. METRONIDAZOLE [Concomitant]
  14. CEFEPIME (CEFEPIME) [Concomitant]

REACTIONS (9)
  - CLOSTRIDIUM DIFFICILE COLITIS [None]
  - CONFUSIONAL STATE [None]
  - DEHYDRATION [None]
  - HAEMORRHOIDAL HAEMORRHAGE [None]
  - LETHARGY [None]
  - LOWER RESPIRATORY TRACT INFECTION [None]
  - NEUTROPENIC SEPSIS [None]
  - PANCYTOPENIA [None]
  - THERAPY NON-RESPONDER [None]
